FAERS Safety Report 18700824 (Version 1)
Quarter: 2021Q1

REPORT INFORMATION
  Report Type: Spontaneous
  Country: US (occurrence: US)
  Receive Date: 20210104
  Receipt Date: 20210104
  Transmission Date: 20210419
  Serious: No
  Sender: FDA-Public Use
  Company Number: None

PATIENT
  Age: 54 Year
  Sex: Female
  Weight: 100.7 kg

DRUGS (2)
  1. BUPROPION HCL XL 300MG TAB [Suspect]
     Active Substance: BUPROPION HYDROCHLORIDE
     Indication: MAJOR DEPRESSION
     Route: 048
     Dates: start: 20201110
  2. SERTRALINE HCL 100MG TABS [Suspect]
     Active Substance: SERTRALINE HYDROCHLORIDE

REACTIONS (5)
  - Suicidal ideation [None]
  - Depression [None]
  - Abdominal discomfort [None]
  - Suicide attempt [None]
  - Insomnia [None]

NARRATIVE: CASE EVENT DATE: 20201120
